FAERS Safety Report 12594897 (Version 1)
Quarter: 2016Q3

REPORT INFORMATION
  Report Type: Spontaneous
  Country: SE (occurrence: SE)
  Receive Date: 20160726
  Receipt Date: 20160726
  Transmission Date: 20161109
  Serious: Yes (Hospitalization)
  Sender: FDA-Public Use
  Company Number: SE-PFIZER INC-2016331114

PATIENT
  Age: 88 Year
  Sex: Female

DRUGS (8)
  1. XANOR [Suspect]
     Active Substance: ALPRAZOLAM
     Dosage: 0.25 MG, 3X/DAY
     Dates: start: 201601
  2. CRESTOR [Concomitant]
     Active Substance: ROSUVASTATIN CALCIUM
     Dosage: UNK
     Dates: start: 2007
  3. OMEPRAZOL [Concomitant]
     Active Substance: OMEPRAZOLE
     Dosage: UNK
     Dates: start: 2007
  4. SELOKEN [Concomitant]
     Active Substance: METOPROLOL
     Dosage: UNK
     Dates: start: 2007
  5. TROMBYL [Concomitant]
     Active Substance: ASPIRIN
     Dosage: UNK
     Dates: start: 2007
  6. ALVEDON [Concomitant]
     Active Substance: ACETAMINOPHEN
     Dosage: UNK
     Dates: start: 2007
  7. XANOR [Suspect]
     Active Substance: ALPRAZOLAM
     Indication: ANXIETY
     Dosage: 0.125 MG, 4X/DAY
     Dates: start: 2010
  8. INDERAL [Concomitant]
     Active Substance: PROPRANOLOL HYDROCHLORIDE
     Dosage: UNK
     Dates: start: 2007

REACTIONS (7)
  - Thinking abnormal [Recovered/Resolved]
  - Confusional state [Recovered/Resolved]
  - Abnormal dreams [Recovered/Resolved]
  - Headache [Unknown]
  - Dysphagia [Not Recovered/Not Resolved]
  - Dyspnoea [Recovering/Resolving]
  - Fear [Unknown]

NARRATIVE: CASE EVENT DATE: 201601
